FAERS Safety Report 26027020 (Version 1)
Quarter: 2025Q4

REPORT INFORMATION
  Report Type: Spontaneous
  Country: CN (occurrence: CN)
  Receive Date: 20251111
  Receipt Date: 20251111
  Transmission Date: 20260117
  Serious: Yes (Hospitalization)
  Sender: GE HEALTHCARE
  Company Number: None

PATIENT
  Age: 67 Year
  Sex: Male
  Weight: 82 kg

DRUGS (1)
  1. VISIPAQUE [Suspect]
     Active Substance: IODIXANOL
     Indication: Urogram
     Dosage: 80 ML, TOTAL
     Route: 042
     Dates: start: 20251023

REACTIONS (5)
  - Foaming at mouth [Recovering/Resolving]
  - Restlessness [Recovering/Resolving]
  - Loss of consciousness [Recovered/Resolved]
  - Hypoaesthesia [Recovering/Resolving]
  - Contrast media allergy [Recovering/Resolving]

NARRATIVE: CASE EVENT DATE: 20251023
